FAERS Safety Report 24250674 (Version 1)
Quarter: 2024Q3

REPORT INFORMATION
  Report Type: Report from Study
  Country: TW (occurrence: None)
  Receive Date: 20240826
  Receipt Date: 20240826
  Transmission Date: 20241017
  Serious: Yes (Death)
  Sender: ASTRAZENECA
  Company Number: 2024A193010

PATIENT
  Sex: Female

DRUGS (1)
  1. IMFINZI [Suspect]
     Active Substance: DURVALUMAB
     Dosage: 480.0MG UNKNOWN
     Route: 042
     Dates: start: 20240626

REACTIONS (1)
  - Death [Fatal]
